FAERS Safety Report 6803935-5 (Version None)
Quarter: 2010Q2

REPORT INFORMATION
  Report Type: 
  Country: None (occurrence: None)
  Receive Date: 20100628
  Receipt Date: 20060412
  Transmission Date: 20101027
  Serious: No
  Sender: FDA-Public Use
  Company Number: US-PFIZER INC-2006055080

PATIENT
  Sex: Male

DRUGS (2)
  1. SUTENT [Suspect]
     Indication: RENAL NEOPLASM
     Route: 048
     Dates: start: 20060406
  2. ZOMETA [Concomitant]
     Indication: RENAL CANCER
     Route: 065

REACTIONS (5)
  - EXOPHTHALMOS [None]
  - EYE SWELLING [None]
  - HYPERSENSITIVITY [None]
  - OCULAR HYPERAEMIA [None]
  - PERIORBITAL OEDEMA [None]
